FAERS Safety Report 4718045-0 (Version None)
Quarter: 2005Q3

REPORT INFORMATION
  Report Type: 
  Country: None (occurrence: None)
  Receive Date: 20050718
  Receipt Date: 20050405
  Transmission Date: 20060218
  Serious: No
  Sender: FDA-Public Use
  Company Number: 2005000675

PATIENT
  Age: 68 Year
  Sex: Male
  Weight: 111.1313 kg

DRUGS (9)
  1. TARCEVA [Suspect]
     Indication: NON-SMALL CELL LUNG CANCER
     Dosage: 150 MG (QD), ORAL
     Route: 048
     Dates: start: 20050201
  2. TIAZAC [Concomitant]
  3. ALTACE [Concomitant]
  4. IMDUR [Concomitant]
  5. K-DUR 10 [Concomitant]
  6. PLAVIX [Concomitant]
  7. NIACIN [Concomitant]
  8. MULTIVITAMIN [Concomitant]
  9. COZAAR [Concomitant]

REACTIONS (5)
  - COUGH [None]
  - DYSPNOEA [None]
  - PRURITUS [None]
  - RASH [None]
  - RESTLESSNESS [None]
